FAERS Safety Report 8539194-5 (Version None)
Quarter: 2012Q3

REPORT INFORMATION
  Report Type: 
  Country: None (occurrence: None)
  Receive Date: 20120716
  Receipt Date: 20120703
  Transmission Date: 20120928
  Serious: Yes (Hospitalization, Other)
  Sender: FDA-Public Use
  Company Number: 2009AL003932

PATIENT
  Age: 36 Year
  Sex: Female

DRUGS (17)
  1. FOLIC ACID [Suspect]
     Dosage: 5 MG;QD;PO
     Route: 048
  2. RAMIPRIL [Concomitant]
  3. LANSOPRAZOLE [Suspect]
     Dosage: 30 MG;QD;PO
     Route: 048
  4. TRIMETHOPRIM [Suspect]
     Indication: URINARY TRACT INFECTION
  5. BENDROFLUMETHIAZIDE [Concomitant]
  6. ABILIFY [Concomitant]
  7. CLOZARIL [Suspect]
     Indication: SCHIZOPHRENIA
     Dosage: 250 MG;QD;PO
     Route: 048
     Dates: start: 20050501, end: 20050519
  8. ATORVASTATIN [Concomitant]
  9. ZOPICLONE [Concomitant]
  10. ZOPICLONE (ZOPICLONE) [Suspect]
     Dosage: 3.75 MG
  11. FUROSEMIDE [Concomitant]
  12. PERINDOPRIL ERBUMINE [Suspect]
     Dosage: 2 MG;QD;PO
     Route: 048
  13. ARIPIPRAZOLE [Concomitant]
  14. DIAZEPAM [Suspect]
     Dosage: 10 ML
  15. FERROUS SULFATE TAB [Suspect]
     Dosage: 200 MG;BID;PO
     Route: 048
  16. CLOZARIL [Suspect]
     Indication: SCHIZOPHRENIA
     Dosage: 250 MG;QD;PO
     Route: 048
     Dates: start: 20060605, end: 20060713
  17. CLOZAPINE [Suspect]
     Dosage: PO
     Route: 048
     Dates: start: 20080519

REACTIONS (21)
  - PYREXIA [None]
  - ABDOMINAL TENDERNESS [None]
  - SINUS TACHYCARDIA [None]
  - IRON DEFICIENCY ANAEMIA [None]
  - WHITE BLOOD CELL COUNT INCREASED [None]
  - HAEMORRHAGE [None]
  - STAPHYLOCOCCUS TEST POSITIVE [None]
  - NEUTROPHILIA [None]
  - TACHYCARDIA [None]
  - LABORATORY TEST INTERFERENCE [None]
  - CONSTIPATION [None]
  - BODY MASS INDEX DECREASED [None]
  - HIATUS HERNIA [None]
  - CARDIAC MURMUR [None]
  - PHYSICAL ASSAULT [None]
  - TREATMENT NONCOMPLIANCE [None]
  - URINARY TRACT INFECTION [None]
  - MEAN CELL VOLUME DECREASED [None]
  - DIABETES MELLITUS [None]
  - THROMBOCYTOSIS [None]
  - SKIN DISORDER [None]
